FAERS Safety Report 18576571 (Version 1)
Quarter: 2020Q4

REPORT INFORMATION
  Report Type: Spontaneous
  Country: US (occurrence: US)
  Receive Date: 20201203
  Receipt Date: 20201203
  Transmission Date: 20210114
  Serious: Yes (Hospitalization)
  Sender: FDA-Public Use
  Company Number: US-MYLANLABS-2020M1099219

PATIENT
  Age: 34 Year
  Sex: Female

DRUGS (13)
  1. PREDNISONE. [Suspect]
     Active Substance: PREDNISONE
     Dosage: TAPERED DOSE
     Route: 065
  2. ZIPRASIDONE. [Concomitant]
     Active Substance: ZIPRASIDONE
     Indication: AGITATION
     Dosage: 60 MILLIGRAM, QD
     Route: 065
  3. PREDNISONE. [Suspect]
     Active Substance: PREDNISONE
     Indication: ENCEPHALITIS AUTOIMMUNE
     Dosage: UNK
     Route: 065
  4. LORAZEPAM. [Concomitant]
     Active Substance: LORAZEPAM
     Indication: GENERALISED TONIC-CLONIC SEIZURE
     Dosage: 2 MILLIGRAM
     Route: 042
  5. DIPHENHYDRAMINE. [Concomitant]
     Active Substance: DIPHENHYDRAMINE
     Indication: AGITATION
     Dosage: 625 MILLIGRAM TOTAL OVER 14 DAYS
     Route: 065
  6. ZOLPIDEM [Concomitant]
     Active Substance: ZOLPIDEM TARTRATE
     Indication: CATATONIA
     Dosage: 10 MILLIGRAM, TID
     Route: 048
  7. METHYLPREDNISOLONE. [Suspect]
     Active Substance: METHYLPREDNISOLONE
     Indication: ENCEPHALITIS AUTOIMMUNE
     Dosage: 1 GRAM, QD FOR 5 DAYS
     Route: 042
  8. OLANZAPINE. [Concomitant]
     Active Substance: OLANZAPINE
     Indication: AGITATION
     Dosage: 65 MILLIGRAM, TOTAL OVER 14 DAYS
     Route: 065
  9. FOSPHENYTOIN [Concomitant]
     Active Substance: FOSPHENYTOIN
     Indication: GENERALISED TONIC-CLONIC SEIZURE
     Dosage: 1125 MILLIGRAM
     Route: 042
  10. PHENYTOIN. [Concomitant]
     Active Substance: PHENYTOIN
     Indication: GENERALISED TONIC-CLONIC SEIZURE
     Dosage: 100 MILLIGRAM, TID
     Route: 042
  11. HALOPERIDOL. [Concomitant]
     Active Substance: HALOPERIDOL
     Indication: AGITATION
     Dosage: 70 MILLIGRAM
     Route: 065
  12. RISPERIDONE. [Concomitant]
     Active Substance: RISPERIDONE
     Indication: AGITATION
     Dosage: 6 MILLIGRAM, QD
     Route: 065
  13. LORAZEPAM. [Concomitant]
     Active Substance: LORAZEPAM
     Indication: AGITATION
     Dosage: 36.5 MILLIGRAM, QD
     Route: 042

REACTIONS (1)
  - Drug ineffective [Unknown]
